FAERS Safety Report 18842114 (Version 1)
Quarter: 2021Q1

REPORT INFORMATION
  Report Type: Other
  Country: US (occurrence: US)
  Receive Date: 20210204
  Receipt Date: 20210204
  Transmission Date: 20210419
  Serious: Yes (Hospitalization)
  Sender: FDA-Public Use
  Company Number: US-ROCHE-2618731

PATIENT
  Age: 43 Year
  Sex: Male
  Weight: 79 kg

DRUGS (4)
  1. OCREVUS [Suspect]
     Active Substance: OCRELIZUMAB
     Dosage: 600 MG DOSE TO BE INFUSED ON OR AFTER 11/17/18 Q 6 MONTHS
     Route: 065
     Dates: start: 20201117
  2. OCREVUS [Suspect]
     Active Substance: OCRELIZUMAB
     Route: 065
     Dates: start: 20190529, end: 20190529
  3. OCREVUS [Suspect]
     Active Substance: OCRELIZUMAB
     Indication: MULTIPLE SCLEROSIS
     Dosage: DATES OF TREATMENT : 17/MAY/2018, 31/MAY/2018, 29/NOV/2018, 29/MAY/2019, 02/DEC/2019, 15/JUN/2020
     Route: 065
     Dates: start: 20180517
  4. OCREVUS [Suspect]
     Active Substance: OCRELIZUMAB
     Route: 042
     Dates: start: 20170517

REACTIONS (3)
  - Asthenia [Not Recovered/Not Resolved]
  - Pyrexia [Recovered/Resolved]
  - COVID-19 [Not Recovered/Not Resolved]

NARRATIVE: CASE EVENT DATE: 202012
